FAERS Safety Report 4557042-5 (Version None)
Quarter: 2005Q1

REPORT INFORMATION
  Report Type: 
  Country: None (occurrence: None)
  Receive Date: 20050103
  Receipt Date: 20040910
  Transmission Date: 20050727
  Serious: Yes (Other)
  Sender: FDA-Public Use
  Company Number: 2004UW19123

PATIENT
  Age: 75 Year
  Sex: Male

DRUGS (3)
  1. CRESTOR [Suspect]
     Indication: BLOOD CHOLESTEROL INCREASED
     Dosage: 10 MG QD PO
     Route: 048
  2. DILANTIN [Concomitant]
  3. NIFEREX [Concomitant]

REACTIONS (3)
  - DYSURIA [None]
  - SOMNOLENCE [None]
  - URINE FLOW DECREASED [None]
